FAERS Safety Report 16011620 (Version 1)
Quarter: 2019Q1

REPORT INFORMATION
  Report Type: Spontaneous
  Country: US (occurrence: US)
  Receive Date: 20190227
  Receipt Date: 20190227
  Transmission Date: 20190418
  Serious: No
  Sender: FDA-Public Use
  Company Number: US-PFIZER INC-2017285607

PATIENT
  Age: 60 Year
  Sex: Female
  Weight: 92.97 kg

DRUGS (20)
  1. LYRICA [Suspect]
     Active Substance: PREGABALIN
     Indication: BACK PAIN
     Dosage: 150 MG, 2X/DAY
     Route: 048
  2. ADVAIR HFA [Concomitant]
     Active Substance: FLUTICASONE PROPIONATE\SALMETEROL XINAFOATE
     Dosage: 1 DF, 2X/DAY (FLUTICASONE PROPIONATE 250 MCG/SALMETEROL XINAFOATE 50 MCG) 1 PUFF INHALATION)
     Route: 055
  3. OMEGA 3 DHA [DOCOSAHEXAENOIC ACID] [Concomitant]
     Dosage: UNK
     Route: 048
  4. BIOFREEZE [CAMPHOR;ISOPROPANOL;MENTHOL] [Concomitant]
     Dosage: 1 DF, AS NEEDED (1 APPLICA TO AFFECTED AREA AS NEEDED)
  5. ANTACID [ALUMINIUM HYDROXIDE GEL;MAGNESIUM HYDROXIDE;SIMETICONE] [Concomitant]
     Dosage: UNK
  6. LYRICA [Suspect]
     Active Substance: PREGABALIN
     Indication: NEUROPATHY PERIPHERAL
     Dosage: 75 MG, 3X/DAY
     Route: 048
  7. LEVOTHYROXINE [LEVOTHYROXINE SODIUM] [Concomitant]
     Dosage: 75 UG, 1X/DAY
     Route: 048
  8. VITAMIN D3 [Concomitant]
     Active Substance: CHOLECALCIFEROL
     Dosage: UNK
  9. LYRICA [Suspect]
     Active Substance: PREGABALIN
     Dosage: 150 MG, 3X/DAY
     Route: 048
     Dates: end: 201812
  10. OMEPRAZOLE. [Concomitant]
     Active Substance: OMEPRAZOLE
     Dosage: 40 MG, 1X/DAY
     Route: 048
  11. NORCO [Concomitant]
     Active Substance: ACETAMINOPHEN\HYDROCODONE BITARTRATE
     Dosage: 1 DF, AS NEEDED (HYDROCODONE: 5 MG/ACETAMINOPHEN: 325 MG)
     Route: 048
  12. ZOFRAN [Concomitant]
     Active Substance: ONDANSETRON HYDROCHLORIDE
     Dosage: 4 MG, 2X/DAY(ON THE TONGUE + ALLOW TO DISSOLVE ORALLY EVERY 12 HRS)
     Route: 060
  13. SYMBICORT [Concomitant]
     Active Substance: BUDESONIDE\FORMOTEROL FUMARATE DIHYDRATE
     Dosage: UNK (160/4.5)
  14. GLIMEPIRIDE. [Concomitant]
     Active Substance: GLIMEPIRIDE
     Dosage: 4 MG, 2X/DAY (BREAKFAST OR THE FIRST MAIN MEAL OF THE DAY)
     Route: 048
  15. GAVILAX [Concomitant]
     Active Substance: POLYETHYLENE GLYCOL 3350
     Dosage: UNK
     Route: 048
  16. FLEXERIL [Concomitant]
     Active Substance: CYCLOBENZAPRINE HYDROCHLORIDE
     Dosage: 10 MG, 3X/DAY
     Route: 048
  17. REPATHA [Concomitant]
     Active Substance: EVOLOCUMAB
     Dosage: UNK
     Route: 058
  18. TOUJEO [Concomitant]
     Active Substance: INSULIN GLARGINE
     Dosage: 300 IU/ML, UNK
     Route: 058
  19. LEVOCETIRIZINE DIHYDROCHLORIDE. [Concomitant]
     Active Substance: LEVOCETIRIZINE DIHYDROCHLORIDE
     Dosage: 5 MG, 1X/DAY
     Route: 048
  20. MAGNESIUM [Concomitant]
     Active Substance: MAGNESIUM
     Dosage: 250 MG, 2X/DAY
     Route: 048

REACTIONS (2)
  - Memory impairment [Unknown]
  - Drug ineffective [Unknown]
